FAERS Safety Report 15574595 (Version 1)
Quarter: 2018Q4

REPORT INFORMATION
  Report Type: Spontaneous
  Country: US (occurrence: US)
  Receive Date: 20181026
  Receipt Date: 20181026
  Transmission Date: 20190205
  Serious: No
  Sender: FDA-Public Use
  Company Number: None

PATIENT
  Age: 55 Year
  Sex: Male

DRUGS (1)
  1. VOTRIENT [Suspect]
     Active Substance: PAZOPANIB HYDROCHLORIDE
     Route: 048
     Dates: start: 20180926

REACTIONS (5)
  - Flank pain [None]
  - Diarrhoea [None]
  - Fatigue [None]
  - Dry skin [None]
  - Decreased appetite [None]

NARRATIVE: CASE EVENT DATE: 20181025
